FAERS Safety Report 6600888-X (Version None)
Quarter: 2010Q1

REPORT INFORMATION
  Report Type: 
  Country: None (occurrence: None)
  Receive Date: 20100225
  Receipt Date: 20100206
  Transmission Date: 20100710
  Serious: No
  Sender: FDA-Public Use
  Company Number: A0839554A

PATIENT
  Sex: Female

DRUGS (3)
  1. LAMOTRIGINE [Suspect]
     Indication: BIPOLAR DISORDER
     Route: 065
  2. LAMOTRIGINE [Suspect]
     Route: 065
  3. LAMICTAL CD [Suspect]
     Indication: BIPOLAR DISORDER
     Route: 065

REACTIONS (8)
  - AGITATION [None]
  - BACK PAIN [None]
  - DRUG INEFFECTIVE [None]
  - HEADACHE [None]
  - MOOD ALTERED [None]
  - NECK PAIN [None]
  - PAIN [None]
  - THERAPEUTIC RESPONSE DECREASED [None]
